FAERS Safety Report 8112983-7 (Version None)
Quarter: 2012Q1

REPORT INFORMATION
  Report Type: 
  Country: None (occurrence: None)
  Receive Date: 20120203
  Receipt Date: 20120123
  Transmission Date: 20120608
  Serious: Yes (Hospitalization)
  Sender: FDA-Public Use
  Company Number: US-ELI_LILLY_AND_COMPANY-US201201007844

PATIENT
  Sex: Female

DRUGS (12)
  1. CALCIUM 500+D [Concomitant]
  2. MIRALAX [Concomitant]
  3. TYLENOL                                 /SCH/ [Concomitant]
  4. VITAMIN TAB [Concomitant]
     Dosage: 500 MG, UNK
  5. DAPTOMYCIN [Concomitant]
     Dosage: 500 MG, UNK
  6. FORTEO [Suspect]
     Indication: OSTEOPOROSIS
     Dosage: 20 UG, QD
     Dates: start: 20100501
  7. CENTRUM [Concomitant]
  8. VITAMIN D [Concomitant]
  9. CALCITONIN SALMON [Concomitant]
  10. GABAPENTIN [Concomitant]
  11. TRAMADOL HCL [Concomitant]
  12. OMEPRAZOLE [Concomitant]

REACTIONS (4)
  - SURGERY [None]
  - SPINAL OPERATION [None]
  - POST PROCEDURAL INFECTION [None]
  - DRUG DOSE OMISSION [None]
